FAERS Safety Report 20439053 (Version 1)
Quarter: 2022Q1

REPORT INFORMATION
  Report Type: Spontaneous
  Country: US (occurrence: US)
  Receive Date: 20220207
  Receipt Date: 20220207
  Transmission Date: 20220423
  Serious: No
  Sender: FDA-Public Use
  Company Number: US-LUPIN PHARMACEUTICALS INC.-2022-01486

PATIENT
  Age: 24 Year
  Sex: Female

DRUGS (2)
  1. TRIAMCINOLONE [Suspect]
     Active Substance: TRIAMCINOLONE
     Indication: Keloid scar
     Dosage: 0.5 MILLILITER, DOSAGE OF 1ST INJECTION: 0.5 ML AT 40 MG/ML
     Route: 026
  2. TRIAMCINOLONE [Suspect]
     Active Substance: TRIAMCINOLONE
     Dosage: 0.7 MILLILITER, DOSAGE OF 2ND INJECTION: 0.7 ML AT 40 MG/ML
     Route: 026

REACTIONS (5)
  - Skin atrophy [Recovered/Resolved]
  - Lipoatrophy [Recovered/Resolved]
  - Skin hypopigmentation [Recovered/Resolved]
  - Papule [Recovered/Resolved]
  - Off label use [Unknown]
